FAERS Safety Report 23796024 (Version 2)
Quarter: 2024Q2

REPORT INFORMATION
  Report Type: Spontaneous
  Country: US (occurrence: US)
  Receive Date: 20240429
  Receipt Date: 20240612
  Transmission Date: 20240716
  Serious: Yes (Other)
  Sender: FDA-Public Use
  Company Number: US-BRISTOL-MYERS SQUIBB COMPANY-2024-065718

PATIENT
  Age: 61 Year
  Sex: Female

DRUGS (1)
  1. ORENCIA [Suspect]
     Active Substance: ABATACEPT
     Indication: Rheumatoid arthritis
     Dosage: EVERY WEEK
     Route: 058
     Dates: start: 201710

REACTIONS (6)
  - Neuropathy peripheral [Unknown]
  - Joint swelling [Unknown]
  - Arthralgia [Unknown]
  - Spinal pain [Unknown]
  - Cough [Unknown]
  - Drug effect less than expected [Unknown]
